FAERS Safety Report 7004258-4 (Version None)
Quarter: 2010Q3

REPORT INFORMATION
  Report Type: 
  Country: None (occurrence: None)
  Receive Date: 20100920
  Receipt Date: 20100224
  Transmission Date: 20110219
  Serious: No
  Sender: FDA-Public Use
  Company Number: US-WYE-H13876310

PATIENT
  Sex: Female
  Weight: 52.21 kg

DRUGS (4)
  1. PRISTIQ [Suspect]
     Indication: DEPRESSION
     Route: 048
     Dates: start: 20090401, end: 20090601
  2. PRISTIQ [Suspect]
     Dosage: RESTARTED AT UNKNOWN DOSE
     Route: 048
     Dates: start: 20090901
  3. ANTABUSE [Concomitant]
  4. PROPRANOLOL [Concomitant]

REACTIONS (3)
  - BLOOD PRESSURE INCREASED [None]
  - DRUG EFFECT DECREASED [None]
  - PALPITATIONS [None]
